FAERS Safety Report 4304359-5 (Version None)
Quarter: 2004Q1

REPORT INFORMATION
  Report Type: 
  Country: None (occurrence: None)
  Receive Date: 20040224
  Receipt Date: 20040209
  Transmission Date: 20041129
  Serious: Yes (Other)
  Sender: FDA-Public Use
  Company Number: ZANA001130

PATIENT
  Age: 50 Year
  Sex: Male

DRUGS (4)
  1. ZANAFLEX [Suspect]
     Indication: BACK INJURY
     Dosage: 18 MG DAILY ORAL
     Route: 048
     Dates: start: 20040202, end: 20040207
  2. ACCUPRIL [Concomitant]
  3. VIOXX [Concomitant]
  4. ZOCOR [Concomitant]

REACTIONS (14)
  - BLOOD PRESSURE INCREASED [None]
  - CHEST PAIN [None]
  - COMA [None]
  - CONVULSION [None]
  - DIZZINESS [None]
  - DYSPEPSIA [None]
  - EPISTAXIS [None]
  - FEELING ABNORMAL [None]
  - HYPERACUSIS [None]
  - HYPOAESTHESIA [None]
  - LOSS OF CONSCIOUSNESS [None]
  - NASAL DRYNESS [None]
  - PARAESTHESIA [None]
  - RHINORRHOEA [None]
